FAERS Safety Report 9029882 (Version 3)
Quarter: 2013Q2

REPORT INFORMATION
  Report Type: Spontaneous
  Country: US (occurrence: US)
  Receive Date: 20130124
  Receipt Date: 20130425
  Transmission Date: 20140414
  Serious: No
  Sender: FDA-Public Use
  Company Number: US-B.I. PHARMACEUTICALS,INC./RIDGEFIELD-2013-BI-01839BP

PATIENT
  Age: 51 Year
  Sex: Female
  Weight: 91 kg

DRUGS (13)
  1. SPIRIVA [Suspect]
     Indication: CHRONIC OBSTRUCTIVE PULMONARY DISEASE
     Dosage: 18 MCG
     Route: 045
  2. ALBUTEROL [Concomitant]
     Route: 055
  3. ALBUTEROL [Concomitant]
     Dosage: (INHALATION SPRAY)
     Route: 055
  4. ADVAIR [Concomitant]
     Dosage: (INHALATION AEROSOL) STRENGTH: 250/50MCG; DAILY DOSE: 2PUFFS
     Route: 055
  5. PREDNISONE [Concomitant]
     Dosage: 10 MG
     Route: 048
  6. NASONEX [Concomitant]
     Route: 045
  7. PREMARIN [Concomitant]
     Route: 048
  8. NEXIUM [Concomitant]
     Route: 048
  9. CELEXA [Concomitant]
     Route: 048
  10. LASIX [Concomitant]
     Route: 048
  11. LYRICA [Concomitant]
     Route: 048
  12. POTASSIUM [Concomitant]
     Route: 048
  13. SINGULAIR [Concomitant]
     Route: 048

REACTIONS (5)
  - Dyspnoea [Not Recovered/Not Resolved]
  - Product quality issue [Recovered/Resolved]
  - Pneumonia [Not Recovered/Not Resolved]
  - Product quality issue [Recovered/Resolved]
  - Product quality issue [Recovered/Resolved]
